FAERS Safety Report 9557415 (Version 2)
Quarter: 2015Q2

REPORT INFORMATION
  Report Type: Spontaneous
  Country: DK (occurrence: None)
  Receive Date: 20130924
  Receipt Date: 20150406
  Transmission Date: 20150821
  Serious: Yes (Hospitalization)
  Sender: FDA-Public Use
  Company Number: DK-20130005

PATIENT
  Age: 66 Year
  Sex: Male

DRUGS (4)
  1. FURIX [Suspect]
     Active Substance: FUROSEMIDE
     Indication: HYPERTENSION
     Route: 048
     Dates: start: 20130711
  2. VIBRADOX [Suspect]
     Active Substance: DOXYCYCLINE
     Indication: BORRELIA INFECTION
     Dosage: 200 MG (200 MG, -
     Route: 048
     Dates: start: 20130717
  3. LOSARTAN [Suspect]
     Active Substance: LOSARTAN
     Indication: HYPERTENSION
     Dates: start: 20130721
  4. DOTAREM [Suspect]
     Active Substance: GADOTERATE MEGLUMINE
     Indication: NUCLEAR MAGNETIC RESONANCE IMAGING BRAIN
     Dosage: UNK (1 IN 1 D), INTRAVENOUS (NOT OTHERWISE SPECIFIED)??
     Route: 042
     Dates: start: 20130729, end: 20130729

REACTIONS (2)
  - Toxic epidermal necrolysis [None]
  - Stevens-Johnson syndrome [None]

NARRATIVE: CASE EVENT DATE: 20130728
